FAERS Safety Report 12601031 (Version 1)
Quarter: 2016Q3

REPORT INFORMATION
  Report Type: Spontaneous
  Country: IT (occurrence: IT)
  Receive Date: 20160728
  Receipt Date: 20160728
  Transmission Date: 20161109
  Serious: Yes (Other)
  Sender: FDA-Public Use
  Company Number: IT-ROCHE-1803366

PATIENT
  Age: 72 Year
  Sex: Female

DRUGS (7)
  1. SOVALDI [Suspect]
     Active Substance: SOFOSBUVIR
     Indication: HEPATITIS C
     Dosage: LATEST DOSE ON 28/JAN/2016, DAILY
     Route: 048
     Dates: start: 20151105
  2. HUMALOG [Concomitant]
     Active Substance: INSULIN LISPRO
     Indication: DIABETES MELLITUS
     Route: 058
  3. CARDIOASPIRIN [Concomitant]
     Active Substance: ASPIRIN
     Dosage: GASTRO-RESISTANT TABLET
     Route: 048
  4. NEBILOX [Concomitant]
     Active Substance: NEBIVOLOL HYDROCHLORIDE
     Route: 048
  5. OLPRESS [Concomitant]
     Active Substance: OLMESARTAN MEDOXOMIL
     Route: 048
  6. COPEGUS [Suspect]
     Active Substance: RIBAVIRIN
     Indication: HEPATITIS C
     Dosage: LATEST DOSE ON 28/JAN/2016, DAILY
     Route: 048
     Dates: start: 20151105
  7. LANTUS [Concomitant]
     Active Substance: INSULIN GLARGINE
     Indication: DIABETES MELLITUS
     Route: 058

REACTIONS (1)
  - Hepatitis B [Not Recovered/Not Resolved]

NARRATIVE: CASE EVENT DATE: 20160331
